FAERS Safety Report 6146296-X (Version None)
Quarter: 2009Q2

REPORT INFORMATION
  Report Type: 
  Country: None (occurrence: None)
  Receive Date: 20090403
  Receipt Date: 20090326
  Transmission Date: 20091009
  Serious: Yes (Hospitalization)
  Sender: FDA-Public Use
  Company Number: POMP-11079

PATIENT
  Age: 22 Year
  Sex: Male

DRUGS (1)
  1. MYOZYME [Suspect]
     Indication: GLYCOGEN STORAGE DISEASE TYPE II
     Dosage: 20 MG/KG, Q2W, INTRAVENOUS
     Route: 042
     Dates: start: 20070420, end: 20070601

REACTIONS (14)
  - ARTHRALGIA [None]
  - ARTHROPATHY [None]
  - HYPOCHROMIC ANAEMIA [None]
  - LYMPHADENOPATHY [None]
  - MICROCYTIC ANAEMIA [None]
  - OEDEMA PERIPHERAL [None]
  - PAIN IN EXTREMITY [None]
  - PAIN IN JAW [None]
  - PLATELET COUNT INCREASED [None]
  - PLEURITIC PAIN [None]
  - PROTEIN URINE PRESENT [None]
  - PYREXIA [None]
  - SYNOVITIS [None]
  - WHITE BLOOD CELLS URINE POSITIVE [None]
